FAERS Safety Report 6627122-9 (Version None)
Quarter: 2010Q1

REPORT INFORMATION
  Report Type: 
  Country: None (occurrence: None)
  Receive Date: 20100311
  Receipt Date: 20090921
  Transmission Date: 20100710
  Serious: No
  Sender: FDA-Public Use
  Company Number: A0808257A

PATIENT
  Age: 63 Year
  Sex: Male

DRUGS (2)
  1. NICORETTE [Suspect]
  2. NICOTINE [Suspect]

REACTIONS (3)
  - DRUG ADMINISTRATION ERROR [None]
  - DRUG INEFFECTIVE [None]
  - HICCUPS [None]
